FAERS Safety Report 26161529 (Version 1)
Quarter: 2025Q4

REPORT INFORMATION
  Report Type: Spontaneous
  Country: JP (occurrence: JP)
  Receive Date: 20251216
  Receipt Date: 20251216
  Transmission Date: 20260118
  Serious: Yes (Other)
  Sender: RANBAXY
  Company Number: JP-SUN PHARMACEUTICAL INDUSTRIES LTD-2025RR-541991

PATIENT
  Age: 8 Decade
  Sex: Male
  Weight: 64 kg

DRUGS (10)
  1. OXALIPLATIN [Suspect]
     Active Substance: OXALIPLATIN
     Indication: Rectosigmoid cancer metastatic
     Dosage: FOLFOX4+BEVACIZUMAB(BEV)
     Route: 065
  2. LEUCOVORIN CALCIUM [Suspect]
     Active Substance: LEUCOVORIN CALCIUM
     Indication: Rectosigmoid cancer metastatic
     Dosage: FOLFOX4+BEVACIZUMAB(BEV)
     Route: 065
  3. FLUOROURACIL [Suspect]
     Active Substance: FLUOROURACIL
     Indication: Rectosigmoid cancer metastatic
     Dosage: FOLFOX4+BEVACIZUMAB(BEV)
     Route: 065
  4. BEVACIZUMAB [Suspect]
     Active Substance: BEVACIZUMAB
     Indication: Rectosigmoid cancer metastatic
     Dosage: FOLFOX4+BEVACIZUMAB(BEV)
     Route: 065
  5. TEGAFUR [Concomitant]
     Active Substance: TEGAFUR
     Indication: Colon cancer
     Dosage: TEGAFUR/URACIL
     Route: 065
  6. TEGAFUR [Concomitant]
     Active Substance: TEGAFUR
     Dosage: TEGAFUR/GIMERACIL/OTERACIL
     Route: 065
  7. URACIL [Concomitant]
     Active Substance: URACIL
     Indication: Colon cancer
     Dosage: TEGAFUR/URACIL
     Route: 065
  8. GIMERACIL [Concomitant]
     Active Substance: GIMERACIL
     Indication: Colon cancer
     Dosage: TEGAFUR/GIMERACIL/OTERACIL
     Route: 065
  9. OTERACIL [Concomitant]
     Active Substance: OTERACIL
     Indication: Colon cancer
     Dosage: TEGAFUR/GIMERACIL/OTERACIL
     Route: 065
  10. CAPECITABINE [Concomitant]
     Active Substance: CAPECITABINE
     Indication: Rectosigmoid cancer metastatic
     Dosage: CAPOX+BEV
     Route: 065

REACTIONS (3)
  - Urinary retention [Recovered/Resolved]
  - Disease progression [Unknown]
  - Neuropathy peripheral [Unknown]
